FAERS Safety Report 16991149 (Version 1)
Quarter: 2019Q4

REPORT INFORMATION
  Report Type: Spontaneous
  Country: BE (occurrence: BE)
  Receive Date: 20191104
  Receipt Date: 20191104
  Transmission Date: 20200122
  Serious: Yes (Other)
  Sender: FDA-Public Use
  Company Number: BE-ELI_LILLY_AND_COMPANY-BE201910007357

PATIENT
  Age: 68 Year
  Sex: Female

DRUGS (20)
  1. MEDROL [Concomitant]
     Active Substance: METHYLPREDNISOLONE
     Dosage: 8 MG, UNKNOWN
  2. SPIRIVA [Concomitant]
     Active Substance: TIOTROPIUM BROMIDE MONOHYDRATE
     Dosage: UNK UNK, DAILY
  3. RELVAR [Concomitant]
     Active Substance: FLUTICASONE FUROATE\VILANTEROL TRIFENATATE
     Dosage: UNK, DAILY
  4. DUOVENT [Concomitant]
     Active Substance: FENOTEROL HYDROBROMIDE
     Dosage: UNK, PRN
  5. BURINEX [Concomitant]
     Active Substance: BUMETANIDE
     Dosage: 1.25 MG, EACH MORNING
  6. D-CURE [Concomitant]
     Active Substance: CHOLECALCIFEROL
     Dosage: 25000 DOSAGE FORM, OTHER
  7. OLUMIANT [Suspect]
     Active Substance: BARICITINIB
     Dosage: 4 UNK
     Route: 065
     Dates: start: 201810, end: 201910
  8. PROLIA [Concomitant]
     Active Substance: DENOSUMAB
     Dosage: UNK
     Dates: start: 2014, end: 201809
  9. STROVITE PLUS [Concomitant]
  10. ASAFLOW [Concomitant]
     Active Substance: ASPIRIN
     Dosage: 80 MG, EACH MORNING
  11. TRADONAL [Concomitant]
     Active Substance: TRAMADOL HYDROCHLORIDE
     Dosage: 50 MG, BID
  12. MEDROL [Concomitant]
     Active Substance: METHYLPREDNISOLONE
     Dosage: 16 UNK
  13. ZALDIAR [Concomitant]
     Active Substance: ACETAMINOPHEN\TRAMADOL HYDROCHLORIDE
     Dosage: UNK, QID
  14. CLOZAN [Concomitant]
     Dosage: UNK, TID
  15. CALCIUM CARBONATE. [Concomitant]
     Active Substance: CALCIUM CARBONATE
     Dosage: 1.25 G, DAILY
  16. ISOTEN [Concomitant]
     Active Substance: BISOPROLOL FUMARATE
     Dosage: 5 MG, EACH MORNING
  17. OLUMIANT [Suspect]
     Active Substance: BARICITINIB
     Indication: RHEUMATOID ARTHRITIS
     Dosage: UNK, UNKNOWN
     Route: 065
     Dates: start: 201804, end: 201810
  18. NEXIUM I.V. [Concomitant]
     Active Substance: ESOMEPRAZOLE SODIUM
     Dosage: 20 MG, EACH MORNING
  19. D-CURE [Concomitant]
     Active Substance: CHOLECALCIFEROL
     Dosage: UNK, WEEKLY (1/W)
  20. REMERGON [Concomitant]
     Active Substance: MIRTAZAPINE
     Dosage: 30 MG, EACH EVENING

REACTIONS (3)
  - Pulmonary arterial hypertension [Unknown]
  - Pulmonary embolism [Recovering/Resolving]
  - Drug ineffective [Recovering/Resolving]

NARRATIVE: CASE EVENT DATE: 201910
